FAERS Safety Report 5634360-0 (Version None)
Quarter: 2008Q1

REPORT INFORMATION
  Report Type: 
  Country: None (occurrence: None)
  Receive Date: 20080222
  Receipt Date: 20080122
  Transmission Date: 20080703
  Serious: No
  Sender: FDA-Public Use
  Company Number: US-BAYER-200812489NA

PATIENT
  Age: 20 Year
  Sex: Female
  Weight: 98 kg

DRUGS (3)
  1. YAZ [Suspect]
     Indication: MENSTRUATION IRREGULAR
     Route: 048
     Dates: start: 20071223
  2. SYNTHROID [Concomitant]
     Indication: THYROID DISORDER
  3. IRON PILLS [Concomitant]
     Indication: ANAEMIA

REACTIONS (1)
  - METRORRHAGIA [None]
